FAERS Safety Report 9672491 (Version 1)
Quarter: 2013Q4

REPORT INFORMATION
  Report Type: Spontaneous
  Country: US (occurrence: US)
  Receive Date: 20131106
  Receipt Date: 20131106
  Transmission Date: 20140711
  Serious: No
  Sender: FDA-Public Use
  Company Number: US-009507513-1310USA010500

PATIENT
  Sex: Female

DRUGS (2)
  1. DULERA [Suspect]
     Indication: DISEASE COMPLICATION
     Dosage: ORAL INHALATION, TWO PUFFS TWICE DAILY
     Route: 048
  2. DULERA [Suspect]
     Dosage: ORAL INHALATION, ONE PUFF TWICE DAILY
     Route: 048
     Dates: start: 20131021

REACTIONS (2)
  - Pain in extremity [Not Recovered/Not Resolved]
  - Inappropriate schedule of drug administration [Unknown]
